FAERS Safety Report 11119634 (Version 1)
Quarter: 2015Q2

REPORT INFORMATION
  Report Type: Spontaneous
  Country: BR (occurrence: BR)
  Receive Date: 20150518
  Receipt Date: 20150518
  Transmission Date: 20150821
  Serious: Yes (Other)
  Sender: FDA-Public Use
  Company Number: BR-PFIZER INC-2015086432

PATIENT
  Sex: Female

DRUGS (2)
  1. LYRICA [Suspect]
     Active Substance: PREGABALIN
     Indication: MUSCLE SPASMS
     Dosage: 75 MG, DAILY
     Dates: end: 20150417
  2. LYRICA [Suspect]
     Active Substance: PREGABALIN
     Indication: RHEUMATIC DISORDER

REACTIONS (7)
  - Product use issue [Unknown]
  - Peripheral swelling [Unknown]
  - Mouth swelling [Not Recovered/Not Resolved]
  - Eye disorder [Unknown]
  - Vitreous degeneration [Unknown]
  - Eyelid oedema [Not Recovered/Not Resolved]
  - Dizziness [Unknown]
